FAERS Safety Report 23383012 (Version 6)
Quarter: 2024Q3

REPORT INFORMATION
  Report Type: Report from Study
  Country: AU (occurrence: AU)
  Receive Date: 20240109
  Receipt Date: 20240807
  Transmission Date: 20241017
  Serious: Yes (Other)
  Sender: NOVARTIS
  Company Number: AU-002147023-NVSC2023AU255762

PATIENT
  Age: 46 Year
  Sex: Female

DRUGS (2)
  1. COSENTYX [Suspect]
     Active Substance: SECUKINUMAB
     Indication: Psoriatic arthropathy
     Dosage: UNK
     Route: 058
     Dates: start: 20230816
  2. COSENTYX [Suspect]
     Active Substance: SECUKINUMAB
     Dosage: 150 MG, Q2W
     Route: 065

REACTIONS (11)
  - Lower respiratory tract infection [Unknown]
  - Pneumonia [Unknown]
  - Malaise [Unknown]
  - Infected bite [Unknown]
  - Animal bite [Unknown]
  - COVID-19 [Unknown]
  - Urinary tract infection [Recovered/Resolved]
  - Off label use [Unknown]
  - Arthralgia [Unknown]
  - Synovial cyst [Unknown]
  - Migraine [Unknown]

NARRATIVE: CASE EVENT DATE: 20240101
